FAERS Safety Report 20782352 (Version 1)
Quarter: 2022Q2

REPORT INFORMATION
  Report Type: Report from Study
  Country: US (occurrence: US)
  Receive Date: 20220504
  Receipt Date: 20220504
  Transmission Date: 20220721
  Serious: Yes (Life-Threatening, Other)
  Sender: FDA-Public Use
  Company Number: US-Accord-262533

PATIENT
  Sex: Female

DRUGS (1)
  1. CLOZAPINE [Suspect]
     Active Substance: CLOZAPINE
     Indication: Schizoaffective disorder
     Dosage: PREVIOUSLY: 200 IN THE MORNING AND 250 AT NIGHT THEN DECREASED TO 200 IN MORNING AND 200 AT NIGHT

REACTIONS (2)
  - Neutropenia [Not Recovered/Not Resolved]
  - Patella fracture [Unknown]
